FAERS Safety Report 10478771 (Version 1)
Quarter: 2014Q3

REPORT INFORMATION
  Report Type: Spontaneous
  Country: RU (occurrence: US)
  Receive Date: 20140926
  Receipt Date: 20140926
  Transmission Date: 20150326
  Serious: Yes (Death, Other)
  Sender: FDA-Public Use
  Company Number: RU-009507513-1409USA008478

PATIENT
  Age: 24 Year
  Sex: Female

DRUGS (1)
  1. NUVARING [Suspect]
     Active Substance: ETHINYL ESTRADIOL\ETONOGESTREL
     Indication: CHEMICAL CONTRACEPTION
     Route: 067

REACTIONS (4)
  - Pulmonary embolism [Unknown]
  - Loss of consciousness [Unknown]
  - Myocardial infarction [Unknown]
  - Death [Fatal]
